FAERS Safety Report 5976100-1 (Version None)
Quarter: 2008Q4

REPORT INFORMATION
  Report Type: 
  Country: None (occurrence: None)
  Receive Date: 20081202
  Receipt Date: 20081117
  Transmission Date: 20090506
  Serious: Yes (Death, Other)
  Sender: FDA-Public Use
  Company Number: AT-GENENTECH-272316

PATIENT
  Age: 54 Year
  Sex: Male

DRUGS (5)
  1. AVASTIN [Suspect]
     Indication: DRUG USE FOR UNKNOWN INDICATION
     Dosage: 300 MG, UNK
     Route: 042
     Dates: start: 20080929
  2. AVASTIN [Suspect]
  3. FLUOROURACIL [Concomitant]
     Indication: DRUG USE FOR UNKNOWN INDICATION
     Dosage: UNK
     Dates: start: 20080929, end: 20081001
  4. FOLINSYRE [Concomitant]
     Indication: DRUG USE FOR UNKNOWN INDICATION
     Dosage: UNK
     Dates: start: 20080929, end: 20081001
  5. OXALIPLATIN [Concomitant]
     Indication: DRUG USE FOR UNKNOWN INDICATION
     Dosage: UNK
     Dates: start: 20080929, end: 20081001

REACTIONS (3)
  - HAEMOGLOBIN ABNORMAL [None]
  - METASTASIS [None]
  - RESPIRATORY TRACT HAEMORRHAGE [None]
